FAERS Safety Report 19979719 (Version 1)
Quarter: 2021Q4

REPORT INFORMATION
  Report Type: Spontaneous
  Country: AU (occurrence: AU)
  Receive Date: 20211020
  Receipt Date: 20211020
  Transmission Date: 20220303
  Serious: Yes (Hospitalization)
  Sender: FDA-Public Use
  Company Number: AU-SUN PHARMACEUTICAL INDUSTRIES LTD-2021R1-314386

PATIENT
  Age: 7 Decade
  Sex: Male

DRUGS (1)
  1. DILTIAZEM [Suspect]
     Active Substance: DILTIAZEM
     Indication: Product used for unknown indication
     Dosage: UNK
     Route: 065

REACTIONS (7)
  - Hypotension [Unknown]
  - Poisoning deliberate [Unknown]
  - Hyperglycaemia [Unknown]
  - Bradycardia [Unknown]
  - Shock [Unknown]
  - Lactic acidosis [Unknown]
  - Acute kidney injury [Unknown]
